FAERS Safety Report 5695169-5 (Version None)
Quarter: 2008Q2

REPORT INFORMATION
  Report Type: 
  Country: None (occurrence: None)
  Receive Date: 20080404
  Receipt Date: 20080324
  Transmission Date: 20081010
  Serious: Yes (Other)
  Sender: FDA-Public Use
  Company Number: US-PFIZER INC-2008027301

PATIENT
  Sex: Female

DRUGS (2)
  1. CHANTIX [Suspect]
     Indication: SMOKING CESSATION THERAPY
  2. DEPO-PROVERA SUSPENSION/INJ [Suspect]

REACTIONS (5)
  - BLINDNESS [None]
  - PAPILLOEDEMA [None]
  - RETINAL HAEMORRHAGE [None]
  - THROMBOSIS [None]
  - VISUAL DISTURBANCE [None]
